FAERS Safety Report 20407147 (Version 1)
Quarter: 2022Q1

REPORT INFORMATION
  Report Type: Spontaneous
  Country: US (occurrence: US)
  Receive Date: 20220131
  Receipt Date: 20220131
  Transmission Date: 20220423
  Serious: Yes (Hospitalization)
  Sender: FDA-Public Use
  Company Number: US-BIOVITRUM-2022US01336

PATIENT
  Age: 1 Year
  Sex: Male

DRUGS (2)
  1. SYNAGIS [Suspect]
     Active Substance: PALIVIZUMAB
     Indication: Premature baby
     Dosage: CUMULATIVE DOSE TO FIRST REACTION: 30 MG/KG
     Route: 030
     Dates: start: 202111, end: 2021
  2. SYNAGIS [Suspect]
     Active Substance: PALIVIZUMAB
     Indication: Bronchopulmonary dysplasia
     Dosage: CUMULATIVE DOSE TO FIRST REACTION: 30 MG/KG
     Route: 030
     Dates: start: 2021

REACTIONS (1)
  - Vomiting [Unknown]

NARRATIVE: CASE EVENT DATE: 20220113
